FAERS Safety Report 7177878-4 (Version None)
Quarter: 2010Q4

REPORT INFORMATION
  Report Type: 
  Country: None (occurrence: None)
  Receive Date: 20101220
  Receipt Date: 20101209
  Transmission Date: 20110411
  Serious: Yes (Life-Threatening, Hospitalization, Disabling)
  Sender: FDA-Public Use
  Company Number: US-GENZYME-CLOF-1001353

PATIENT
  Age: 71 Year
  Sex: Male
  Weight: 87.5 kg

DRUGS (10)
  1. CLOLAR [Suspect]
     Indication: MYELODYSPLASTIC SYNDROME
     Dosage: 30.8 MG, ONCE
     Route: 042
     Dates: start: 20101025, end: 20101025
  2. CLOLAR [Suspect]
     Indication: ACUTE MYELOID LEUKAEMIA
     Dosage: 30.8 MG, ONCE
     Route: 042
     Dates: start: 20101029, end: 20101029
  3. CLOFARABINE [Suspect]
     Indication: MYELODYSPLASTIC SYNDROME
     Dosage: 60 MG, ONCE
     Route: 048
     Dates: start: 20101027, end: 20101027
  4. CLOFARABINE [Suspect]
     Indication: ACUTE MYELOID LEUKAEMIA
     Dosage: 60 MG, ONCE
     Route: 048
     Dates: start: 20101030, end: 20101030
  5. CLOFARABINE [Suspect]
     Dosage: 60 MG, ONCE
     Route: 048
     Dates: start: 20101031, end: 20101031
  6. CIMETIDINE [Concomitant]
     Indication: PRODUCT USED FOR UNKNOWN INDICATION
     Dosage: UNK
     Route: 065
  7. RED BLOOD CELLS [Concomitant]
     Indication: BLOOD PRODUCT TRANSFUSION DEPENDENT
     Dosage: UNK
     Route: 042
     Dates: start: 20100101
  8. RED BLOOD CELLS [Concomitant]
  9. PLATELETS [Concomitant]
     Indication: BLOOD PRODUCT TRANSFUSION DEPENDENT
     Dosage: UNK
     Route: 042
     Dates: start: 20100101
  10. PLATELETS [Concomitant]

REACTIONS (1)
  - CEREBRAL HAEMORRHAGE [None]
